FAERS Safety Report 16360748 (Version 1)
Quarter: 2019Q2

REPORT INFORMATION
  Report Type: Spontaneous
  Country: IT (occurrence: IT)
  Receive Date: 20190528
  Receipt Date: 20190528
  Transmission Date: 20190711
  Serious: Yes (Hospitalization)
  Sender: FDA-Public Use
  Company Number: IT-TEVA-2019-IT-1055209

PATIENT
  Age: 60 Year
  Sex: Female

DRUGS (1)
  1. IBUPROFEN. [Suspect]
     Active Substance: IBUPROFEN
     Indication: HEADACHE
     Dosage: DOSAGE FORM: UNSPECIFIED,600MG PER 1 DAY
     Route: 048
     Dates: start: 20091226, end: 20091228

REACTIONS (1)
  - Meningitis chemical [Recovering/Resolving]

NARRATIVE: CASE EVENT DATE: 20091229
